FAERS Safety Report 25793127 (Version 1)
Quarter: 2025Q3

REPORT INFORMATION
  Report Type: Report from Study
  Country: EU (occurrence: EU)
  Receive Date: 20250911
  Receipt Date: 20250911
  Transmission Date: 20251021
  Serious: Yes (Other)
  Sender: VERITY PHARMACEUTICALS INC.
  Company Number: EU-VER-202500014

PATIENT
  Sex: Male

DRUGS (2)
  1. TRIPTORELIN [Suspect]
     Active Substance: TRIPTORELIN
     Indication: Prostate cancer
     Route: 065
  2. APALUTAMIDE [Suspect]
     Active Substance: APALUTAMIDE
     Indication: Prostate cancer
     Route: 048

REACTIONS (7)
  - Cardiomyopathy [Unknown]
  - Headache [Unknown]
  - Hot flush [Unknown]
  - Hypertension [Unknown]
  - Hypothyroidism [Unknown]
  - Pruritus [Unknown]
  - Rash [Unknown]
